FAERS Safety Report 9552978 (Version 3)
Quarter: 2013Q4

REPORT INFORMATION
  Report Type: Spontaneous
  Country: US (occurrence: US)
  Receive Date: 20130925
  Receipt Date: 20131029
  Transmission Date: 20140711
  Serious: Yes (Other)
  Sender: FDA-Public Use
  Company Number: PHEH2013US011223

PATIENT
  Age: 79 Year
  Sex: Female

DRUGS (8)
  1. SANDOSTATIN LAR DEPOT [Suspect]
     Indication: METASTATIC CARCINOID TUMOUR
     Dosage: 30 MG, ONCE IN A MONTH
  2. SYNTHROID [Concomitant]
     Dosage: UNK UKN, UNK
  3. METOPROLOL [Concomitant]
     Dosage: UNK UKN, UNK
  4. DILTIAZEM [Concomitant]
     Dosage: UNK UKN, UNK
  5. MARINOL [Concomitant]
     Dosage: UNK UKN, UNK
  6. ECOTRIN [Concomitant]
     Dosage: UNK UKN, UNK
  7. VITAMIN D3 [Concomitant]
     Dosage: UNK UKN, UNK
  8. CENTRUM SILVER [Concomitant]
     Dosage: UNK UKN, UNK

REACTIONS (9)
  - Transient ischaemic attack [Unknown]
  - Malignant neoplasm progression [Unknown]
  - Discomfort [Unknown]
  - Pain [Unknown]
  - Nausea [Unknown]
  - Abdominal pain upper [Unknown]
  - Weight decreased [Unknown]
  - Gastric dilatation [Unknown]
  - Swelling [Unknown]
